FAERS Safety Report 20814152 (Version 1)
Quarter: 2022Q2

REPORT INFORMATION
  Report Type: Spontaneous
  Country: US (occurrence: US)
  Receive Date: 20220511
  Receipt Date: 20220511
  Transmission Date: 20220721
  Serious: No
  Sender: FDA-Public Use
  Company Number: US-009507513-2204USA006986

PATIENT
  Age: 23 Year
  Sex: Female

DRUGS (4)
  1. PROQUAD [Suspect]
     Active Substance: MEASLES VIRUS STRAIN ENDERS^ ATTENUATED EDMONSTON LIVE ANTIGEN\MUMPS VIRUS STRAIN B LEVEL JERYL LYNN
     Indication: Prophylaxis
     Dosage: .5 MILLILITER
     Route: 058
     Dates: start: 20220413
  2. STERILE DILUENT (WATER) [Suspect]
     Active Substance: WATER
     Dosage: UNK
     Route: 058
     Dates: start: 20220413, end: 20220413
  3. PURIFIED PROTEIN DERIVATIVE OF TUBERCULIN (TB-PPD) [Concomitant]
     Dosage: INTRADERMAL (ID), RIGHT LEFT FOREARM (RLFA)
     Route: 023
     Dates: start: 20220412, end: 20220412
  4. HEPATITIS B VIRUS VACCINE [Concomitant]
     Active Substance: HEPATITIS B VIRUS VACCINE
     Dosage: UNK
     Route: 030
     Dates: start: 20220413

REACTIONS (3)
  - Product administered to patient of inappropriate age [Unknown]
  - Wrong product administered [Unknown]
  - No adverse event [Unknown]

NARRATIVE: CASE EVENT DATE: 20220413
